FAERS Safety Report 17967416 (Version 1)
Quarter: 2020Q3

REPORT INFORMATION
  Report Type: Spontaneous
  Country: US (occurrence: US)
  Receive Date: 20200701
  Receipt Date: 20200701
  Transmission Date: 20201103
  Serious: No
  Sender: FDA-Public Use
  Company Number: US-MYLANLABS-2020M1058608

PATIENT
  Age: 13 Year
  Sex: Male
  Weight: 53 kg

DRUGS (1)
  1. EPINEPHRINE INJECTION USP AUTO?INJECTOR [Suspect]
     Active Substance: EPINEPHRINE
     Indication: FOOD ALLERGY
     Dosage: UNK
     Route: 030

REACTIONS (2)
  - Off label use [Unknown]
  - Product quality issue [Unknown]

NARRATIVE: CASE EVENT DATE: 20200619
